FAERS Safety Report 10368463 (Version 3)
Quarter: 2014Q3

REPORT INFORMATION
  Report Type: Spontaneous
  Country: BR (occurrence: BR)
  Receive Date: 20140807
  Receipt Date: 20140814
  Transmission Date: 20150326
  Serious: Yes (Death, Other)
  Sender: FDA-Public Use
  Company Number: BR-PFIZER INC-2014209315

PATIENT
  Age: 36 Year
  Sex: Male

DRUGS (1)
  1. SUTENT [Suspect]
     Active Substance: SUNITINIB MALATE
     Indication: RENAL CANCER METASTATIC
     Dosage: 50 MG, CYCLIC
     Dates: end: 20140721

REACTIONS (4)
  - Coagulation test abnormal [Unknown]
  - Vomiting [Unknown]
  - Hepatic failure [Fatal]
  - Gastrointestinal haemorrhage [Fatal]
